FAERS Safety Report 7710762-3 (Version None)
Quarter: 2011Q3

REPORT INFORMATION
  Report Type: 
  Country: None (occurrence: None)
  Receive Date: 20110825
  Receipt Date: 20110815
  Transmission Date: 20111222
  Serious: Yes (Other)
  Sender: FDA-Public Use
  Company Number: US-BAXTER-2011BH027009

PATIENT
  Age: 32 Year
  Sex: Female

DRUGS (8)
  1. FENTANYL CITRATE [Suspect]
     Indication: SPINAL ANAESTHESIA
     Route: 065
  2. BUPIVACAINE, UNSPECIFIED [Suspect]
     Route: 065
  3. BUPIVACAINE, UNSPECIFIED [Suspect]
     Indication: SPINAL ANAESTHESIA
     Route: 065
  4. BUPIVACAINE, UNSPECIFIED [Suspect]
     Route: 065
  5. EPHEDRINE [Suspect]
     Indication: BLOOD PRESSURE MANAGEMENT
     Route: 065
  6. BUPIVACAINE, UNSPECIFIED [Suspect]
     Route: 037
  7. FENTANYL CITRATE [Suspect]
     Route: 065
  8. PHENYLEPHRINE HYDROCHLORIDE [Suspect]
     Indication: BLOOD PRESSURE MANAGEMENT
     Route: 065

REACTIONS (2)
  - MATERNAL EXPOSURE DURING PREGNANCY [None]
  - POSTPARTUM HAEMORRHAGE [None]
